FAERS Safety Report 14853356 (Version 2)
Quarter: 2018Q2

REPORT INFORMATION
  Report Type: Report from Study
  Country: IT (occurrence: IT)
  Receive Date: 20180507
  Receipt Date: 20180604
  Transmission Date: 20180711
  Serious: Yes (Hospitalization)
  Sender: FDA-Public Use
  Company Number: IT-PFIZER INC-2018181688

PATIENT
  Age: 46 Year
  Sex: Female

DRUGS (4)
  1. LEXOTAN [Suspect]
     Active Substance: BROMAZEPAM
     Dosage: 20 ML, SINGLE
     Route: 048
     Dates: start: 20171226, end: 20171226
  2. LAMICTAL [Suspect]
     Active Substance: LAMOTRIGINE
     Dosage: 1400 MG, SINGLE
     Route: 048
     Dates: start: 20171226, end: 20171226
  3. ESCITALOPRAM OXALATE. [Suspect]
     Active Substance: ESCITALOPRAM OXALATE
     Dosage: 300 MG, SINGLE
     Route: 048
     Dates: start: 20171226, end: 20171226
  4. EFFEXOR XR [Suspect]
     Active Substance: VENLAFAXINE HYDROCHLORIDE
     Dosage: 7 DF, SINGLE
     Route: 048
     Dates: start: 20171226, end: 20171226

REACTIONS (4)
  - Muscle rigidity [Recovered/Resolved]
  - Drug abuse [Recovered/Resolved]
  - Sopor [Recovered/Resolved]
  - Blood gases abnormal [Recovered/Resolved]

NARRATIVE: CASE EVENT DATE: 20171226
